FAERS Safety Report 5956932-6 (Version None)
Quarter: 2008Q4

REPORT INFORMATION
  Report Type: 
  Country: None (occurrence: None)
  Receive Date: 20081118
  Receipt Date: 20081114
  Transmission Date: 20090506
  Serious: Yes (Hospitalization)
  Sender: FDA-Public Use
  Company Number: FR-WYE-G02582508

PATIENT
  Sex: Male

DRUGS (3)
  1. TORISEL [Suspect]
     Indication: RENAL CANCER METASTATIC
     Dosage: 25 MG EVERY 1 CYC
     Route: 042
     Dates: start: 20081021, end: 20080101
  2. COAPROVEL [Concomitant]
     Indication: HYPERTENSION
     Dosage: 300 MG OF IRBESARTAN (FREQUENCY UNKNOWN)
     Route: 048
     Dates: start: 20070101
  3. AMLOD [Concomitant]
     Indication: HYPERTENSION
     Dosage: 10 MG (FREQUENCY UNKNOWN)
     Route: 048
     Dates: start: 20070101

REACTIONS (3)
  - DYSPNOEA EXERTIONAL [None]
  - INTESTINAL ISCHAEMIA [None]
  - SUBILEUS [None]
